FAERS Safety Report 7450775 (Version 3)
Quarter: 2012Q4

REPORT INFORMATION
  Report Type: Report from Study
  Country: IN (occurrence: IN)
  Receive Date: 20100701
  Receipt Date: 20120911
  Transmission Date: 20130627
  Serious: Yes (Other)
  Sender: FDA-Public Use
  Company Number: IN-PFIZER INC-2010077414

PATIENT
  Age: 42 Year
  Sex: Male

DRUGS (4)
  1. SUTENT [Suspect]
     Indication: METASTATIC RENAL CELL CARCINOMA
     Dosage: 50 mg once daily (4 weeks on and 2 weeks off)
     Route: 048
  2. SUTENT [Suspect]
     Dosage: 50 mg once daily (4 weeks on and 2 weeks off)
     Dates: start: 20100226
  3. SUTENT [Suspect]
     Dosage: 50 mg once daily (4 weeks on and 2 weeks off)
     Dates: start: 20100409
  4. SUTENT [Suspect]
     Dosage: 50 mg once daily (4 weeks on and 2 weeks off)
     Dates: start: 20100521

REACTIONS (7)
  - Skin exfoliation [Not Recovered/Not Resolved]
  - Swelling face [Unknown]
  - Palmar-plantar erythrodysaesthesia syndrome [Unknown]
  - Blood pressure increased [Unknown]
  - Diarrhoea [Unknown]
  - Pain [Unknown]
  - Hypertrophy [Unknown]
